FAERS Safety Report 8207936-4 (Version None)
Quarter: 2012Q1

REPORT INFORMATION
  Report Type: 
  Country: None (occurrence: None)
  Receive Date: 20120314
  Receipt Date: 20120306
  Transmission Date: 20120608
  Serious: No
  Sender: FDA-Public Use
  Company Number: US-PFIZER INC-2012038329

PATIENT
  Sex: Female

DRUGS (4)
  1. METFORMIN [Concomitant]
  2. NORGESTREL AND ETHINYL ESTRADIOL [Suspect]
     Indication: MENSTRUAL DISCOMFORT
  3. SPIRONOLACTONE [Concomitant]
  4. NORGESTREL AND ETHINYL ESTRADIOL [Suspect]
     Indication: OFF LABEL USE

REACTIONS (3)
  - MENSTRUATION DELAYED [None]
  - MENSTRUATION IRREGULAR [None]
  - PRODUCT QUALITY ISSUE [None]
